FAERS Safety Report 8418443-8 (Version None)
Quarter: 2012Q2

REPORT INFORMATION
  Report Type: 
  Country: None (occurrence: None)
  Receive Date: 20120607
  Receipt Date: 20120601
  Transmission Date: 20120825
  Serious: Yes (Hospitalization, Other)
  Sender: FDA-Public Use
  Company Number: US-PFIZER INC-2012081499

PATIENT
  Sex: Female

DRUGS (3)
  1. CHANTIX [Suspect]
     Indication: SMOKING CESSATION THERAPY
     Dosage: 0.5MG/ 1MG
     Dates: start: 20070401, end: 20070601
  2. CYMBALTA [Concomitant]
     Indication: DEPRESSION
     Dosage: UNK
     Dates: start: 20000101
  3. ABILIFY [Concomitant]
     Indication: DEPRESSION
     Dosage: UNK
     Dates: start: 20000101

REACTIONS (5)
  - DEPRESSION [None]
  - INTENTIONAL OVERDOSE [None]
  - SUICIDE ATTEMPT [None]
  - ANXIETY [None]
  - ABNORMAL BEHAVIOUR [None]
